FAERS Safety Report 20653457 (Version 5)
Quarter: 2022Q4

REPORT INFORMATION
  Report Type: Report from Study
  Country: EG (occurrence: EG)
  Receive Date: 20220330
  Receipt Date: 20221227
  Transmission Date: 20230113
  Serious: Yes (Other)
  Sender: FDA-Public Use
  Company Number: EG-NOVARTISPH-NVSC2021EG264098

PATIENT
  Age: 31 Year
  Sex: Female

DRUGS (9)
  1. GILENYA [Suspect]
     Active Substance: FINGOLIMOD HYDROCHLORIDE
     Indication: Multiple sclerosis
     Dosage: 0.5 MG, QD
     Route: 048
     Dates: start: 20200818, end: 20220325
  2. GILENYA [Suspect]
     Active Substance: FINGOLIMOD HYDROCHLORIDE
     Dosage: 0.5 MG, QD
     Route: 048
  3. CALMAG [Concomitant]
     Indication: Supplementation therapy
     Dosage: 1 DF, QD
     Route: 048
     Dates: start: 202103
  4. ALFACALCIDOL [Concomitant]
     Active Substance: ALFACALCIDOL
     Indication: Supplementation therapy
     Dosage: UNK, BID
     Route: 065
     Dates: start: 2020
  5. ALFACALCIDOL [Concomitant]
     Active Substance: ALFACALCIDOL
     Dosage: UNK, QD
     Route: 065
     Dates: start: 2021
  6. NEUROVIT [Concomitant]
     Indication: Supplementation therapy
     Dosage: UNK, BID
     Route: 065
     Dates: start: 2020
  7. CALCIUM\VITAMIN D [Concomitant]
     Active Substance: CALCIUM\VITAMIN D
     Indication: Supplementation therapy
     Dosage: UNK, QD
     Route: 065
     Dates: start: 2021
  8. VITAMIN D NOS [Concomitant]
     Active Substance: VITAMIN D NOS
     Indication: Supplementation therapy
     Dosage: UNK, QD
     Route: 065
     Dates: start: 2021
  9. ASPIRIN [Concomitant]
     Active Substance: ASPIRIN
     Indication: Thrombosis prophylaxis
     Dosage: 2 DOSAGE FORM, QD
     Route: 065
     Dates: start: 20221006, end: 20221010

REACTIONS (3)
  - Brain neoplasm [Recovering/Resolving]
  - Headache [Recovering/Resolving]
  - Vision blurred [Recovering/Resolving]

NARRATIVE: CASE EVENT DATE: 20220920
